FAERS Safety Report 13309295 (Version 2)
Quarter: 2017Q1

REPORT INFORMATION
  Report Type: Report from Study
  Country: FR (occurrence: FR)
  Receive Date: 20170309
  Receipt Date: 20170323
  Transmission Date: 20170428
  Serious: Yes (Hospitalization)
  Sender: FDA-Public Use
  Company Number: FR-PFIZER INC-2017091292

PATIENT
  Age: 37 Year
  Sex: Male
  Weight: 62 kg

DRUGS (14)
  1. CALCIUM CARBONATE/COLECALCIFEROL [Concomitant]
     Dosage: 1 DF, DAILY
  2. PRIMPERAN [Concomitant]
     Active Substance: METOCLOPRAMIDE HYDROCHLORIDE
  3. CRIZOTINIB [Suspect]
     Active Substance: CRIZOTINIB
     Dosage: 500 MG, CYCLIC
     Route: 048
     Dates: start: 20170203, end: 20170225
  4. TRANXENE T-TAB [Concomitant]
     Active Substance: CLORAZEPATE DIPOTASSIUM
     Dosage: 20 MG/2 ML
  5. CRIZOTINIB [Suspect]
     Active Substance: CRIZOTINIB
     Dosage: 250 MG, CYCLIC
     Route: 048
     Dates: start: 20170226, end: 20170226
  6. MORPHINE [Concomitant]
     Active Substance: MORPHINE
     Indication: BONE PAIN
     Dosage: UNK
     Route: 058
     Dates: start: 2016
  7. IMODIUM [Concomitant]
     Active Substance: LOPERAMIDE HYDROCHLORIDE
  8. INNOHEP [Concomitant]
     Active Substance: TINZAPARIN SODIUM
     Indication: THROMBOSIS PROPHYLAXIS
     Dosage: 10 000 IU ANTI-XA/0.5 ML
     Route: 042
     Dates: start: 2016
  9. CRIZOTINIB [Suspect]
     Active Substance: CRIZOTINIB
     Indication: GLIOBLASTOMA
     Dosage: 250 MG, CYCLIC
     Route: 048
     Dates: start: 20170202, end: 20170202
  10. DOLIPRANE [Concomitant]
     Active Substance: ACETAMINOPHEN
     Indication: PAIN
     Dosage: UNK
     Route: 048
     Dates: start: 2016
  11. XGEVA [Concomitant]
     Active Substance: DENOSUMAB
     Dosage: 1 DF, MONTHLY
     Route: 058
  12. MOPRAL /00661201/ [Concomitant]
     Active Substance: OMEPRAZOLE SODIUM
     Dosage: 20 MG, AS NEEDED
  13. FORLAX [Concomitant]
     Active Substance: POLYETHYLENE GLYCOL 4000
  14. ZOPHREN /00955301/ [Concomitant]
     Active Substance: ONDANSETRON

REACTIONS (1)
  - Atrial fibrillation [Recovered/Resolved]

NARRATIVE: CASE EVENT DATE: 20170225
